FAERS Safety Report 7685227-8 (Version None)
Quarter: 2011Q3

REPORT INFORMATION
  Report Type: 
  Country: None (occurrence: None)
  Receive Date: 20110816
  Receipt Date: 20110804
  Transmission Date: 20111222
  Serious: Yes (Hospitalization)
  Sender: FDA-Public Use
  Company Number: US-ELI_LILLY_AND_COMPANY-US201108002119

PATIENT
  Age: 74 Year
  Sex: Female

DRUGS (2)
  1. HUMALOG [Suspect]
     Indication: DIABETES MELLITUS
     Dosage: UNK, PRN
     Dates: start: 20090101
  2. LANTUS [Concomitant]

REACTIONS (3)
  - BLOOD SODIUM DECREASED [None]
  - BACK PAIN [None]
  - JAUNDICE [None]
